FAERS Safety Report 25000494 (Version 2)
Quarter: 2025Q2

REPORT INFORMATION
  Report Type: Spontaneous
  Country: AU (occurrence: AU)
  Receive Date: 20250222
  Receipt Date: 20250422
  Transmission Date: 20250717
  Serious: Yes (Other)
  Sender: CELLTRION
  Company Number: AU-PFIZER INC-PV202500018224

PATIENT

DRUGS (3)
  1. INFLECTRA [Suspect]
     Active Substance: INFLIXIMAB-DYYB
     Indication: Crohn^s disease
     Dates: start: 202305
  2. INFLECTRA [Suspect]
     Active Substance: INFLIXIMAB-DYYB
     Dates: start: 202408
  3. AZATHIOPRINE [Concomitant]
     Active Substance: AZATHIOPRINE

REACTIONS (4)
  - Crohn^s disease [Unknown]
  - Treatment noncompliance [Unknown]
  - Off label use [Unknown]
  - Maternal exposure timing unspecified [Unknown]
